FAERS Safety Report 10287136 (Version 1)
Quarter: 2014Q3

REPORT INFORMATION
  Report Type: Spontaneous
  Country: IT (occurrence: IT)
  Receive Date: 20140709
  Receipt Date: 20140709
  Transmission Date: 20150326
  Serious: Yes (Other)
  Sender: FDA-Public Use
  Company Number: IT-JNJFOC-20140701440

PATIENT
  Age: 72 Year
  Sex: Male

DRUGS (4)
  1. ABCIXIMAB [Suspect]
     Active Substance: ABCIXIMAB
     Indication: PERCUTANEOUS CORONARY INTERVENTION
     Route: 042
  2. ABCIXIMAB [Suspect]
     Active Substance: ABCIXIMAB
     Indication: ANTICOAGULANT THERAPY
     Route: 042
  3. ABCIXIMAB [Suspect]
     Active Substance: ABCIXIMAB
     Indication: ACUTE MYOCARDIAL INFARCTION
     Route: 042
  4. PRASUGREL [Suspect]
     Active Substance: PRASUGREL
     Indication: ANTIPLATELET THERAPY
     Route: 065

REACTIONS (1)
  - Pulmonary alveolar haemorrhage [Unknown]
